FAERS Safety Report 7341834-3 (Version None)
Quarter: 2011Q1

REPORT INFORMATION
  Report Type: 
  Country: None (occurrence: None)
  Receive Date: 20110309
  Receipt Date: 20110225
  Transmission Date: 20110831
  Serious: Yes (Life-Threatening, Other)
  Sender: FDA-Public Use
  Company Number: JP-ELI_LILLY_AND_COMPANY-JP201102000389

PATIENT
  Sex: Female
  Weight: 30.4 kg

DRUGS (3)
  1. ZYPREXA [Suspect]
     Indication: EATING DISORDER
     Dosage: 2.5 MG, DAILY (1/D)
     Route: 048
     Dates: start: 20110106, end: 20110126
  2. THYRADIN-S [Concomitant]
     Indication: HYPOTHYROIDISM
     Dosage: 25 UG, DAILY (1/D)
     Route: 048
     Dates: start: 20110107, end: 20110126
  3. ASPARA K [Concomitant]
     Indication: HYPOKALAEMIA
     Dosage: 900 MG, DAILY (1/D)
     Route: 048
     Dates: start: 20110106, end: 20110126

REACTIONS (7)
  - OFF LABEL USE [None]
  - WHITE BLOOD CELL COUNT DECREASED [None]
  - RED BLOOD CELL COUNT DECREASED [None]
  - HAEMATOCRIT DECREASED [None]
  - HAEMOGLOBIN DECREASED [None]
  - HYPOTHYROIDISM [None]
  - GRANULOCYTOPENIA [None]
